FAERS Safety Report 10775522 (Version 1)
Quarter: 2015Q1

REPORT INFORMATION
  Report Type: Spontaneous
  Country: BR (occurrence: None)
  Receive Date: 20150205
  Receipt Date: 20150205
  Transmission Date: 20150721
  Serious: Yes (Other)
  Sender: FDA-Public Use
  Company Number: 2015-000166

PATIENT
  Age: 85 Year
  Sex: Female

DRUGS (1)
  1. ENABLEX [Suspect]
     Active Substance: DARIFENACIN\DARIFENACIN HYDROBROMIDE
     Dosage: 2 TABLETS
     Route: 048

REACTIONS (1)
  - Neoplasm malignant [None]
